FAERS Safety Report 7269806-8 (Version None)
Quarter: 2011Q1

REPORT INFORMATION
  Report Type: 
  Country: None (occurrence: None)
  Receive Date: 20110202
  Receipt Date: 20101123
  Transmission Date: 20110831
  Serious: No
  Sender: FDA-Public Use
  Company Number: US-BAYER-2011-005572

PATIENT
  Sex: Male

DRUGS (2)
  1. ALEVE (CAPLET) [Suspect]
     Indication: MYALGIA
     Dosage: UNK
     Dates: start: 20101122
  2. ALEVE (CAPLET) [Suspect]
     Indication: MUSCLE STRAIN

REACTIONS (1)
  - DRUG INEFFECTIVE [None]
